FAERS Safety Report 8812111 (Version 3)
Quarter: 2012Q4

REPORT INFORMATION
  Report Type: Spontaneous
  Country: US (occurrence: None)
  Receive Date: 20120925
  Receipt Date: 20121128
  Transmission Date: 20130627
  Serious: Yes (Hospitalization)
  Sender: FDA-Public Use
  Company Number: 2012SGN00405

PATIENT
  Age: 65 Year
  Sex: Female
  Weight: 75.7 kg

DRUGS (14)
  1. BRENTUXIMAB VEDOTIN [Suspect]
     Indication: DIFFUSE LARGE B-CELL LYMPHOMA
     Dosage: 1.8 mg/kg, q21d, Intravenous
     Route: 042
     Dates: start: 20120506, end: 20120829
  2. ALEVE (NAPROXEN SODIUM) [Concomitant]
  3. ATIVAN (LORAZEPAM) [Concomitant]
  4. DOXEPIN (DOXEPIN HYDROCHLORIDE) [Concomitant]
  5. MULTIVITAMIN (MULTIVITAMIN) [Concomitant]
  6. HYDROCODONE BITARTRATE AND ACETAMINOPHEN (HYDROCODONE BITARTRATE, PARACETAMOL) [Concomitant]
  7. PRILOSEC (OMEPRAZOLE) [Concomitant]
  8. PROCHLORPERAZINE (PROCHLORPERAZINE MALEATE) [Concomitant]
  9. PROMETHAZINE (PROMETHAZINE) [Concomitant]
  10. TYLENOL ARTHRITIS (PARACETAMOL) [Concomitant]
  11. XANAX (ALPRAZOLAM) [Concomitant]
  12. NICOTINE (NICOTINE) [Concomitant]
  13. YDROCHLOROTHIAZIDE (HYDROCHLOROTHIAZIDE) [Concomitant]
  14. NEURONTIN (GABAPENTIN) [Concomitant]

REACTIONS (2)
  - Vertigo [None]
  - Hypertension [None]
